FAERS Safety Report 8859187 (Version 1)
Quarter: 2012Q4

REPORT INFORMATION
  Report Type: 
  Country: US (occurrence: US)
  Receive Date: 20121024
  Receipt Date: 20121024
  Transmission Date: 20130627
  Serious: No
  Sender: FDA-Public Use
  Company Number: US-PFIZER INC-2012262041

PATIENT
  Sex: Male

DRUGS (1)
  1. VIRACEPT [Suspect]
     Dosage: 250 mg, 3x/day

REACTIONS (1)
  - Viral load increased [Unknown]
